FAERS Safety Report 11422395 (Version 3)
Quarter: 2016Q1

REPORT INFORMATION
  Report Type: Spontaneous
  Country: US (occurrence: US)
  Receive Date: 20150827
  Receipt Date: 20160113
  Transmission Date: 20160525
  Serious: Yes (Other)
  Sender: FDA-Public Use
  Company Number: US-PFIZER INC-2015271021

PATIENT
  Age: 80 Year
  Sex: Female
  Weight: 76 kg

DRUGS (9)
  1. EMLA [Concomitant]
     Active Substance: LIDOCAINE\PRILOCAINE
     Dosage: 2.5 % - 2.5 % (APPLY BY TOPICAL ROUTE TO PORT SITE 1 HOUR BEFORE CHEMO AND COVER WITH CLING WRAP)
     Route: 061
     Dates: start: 20140318, end: 20140318
  2. ZOFRAN [Concomitant]
     Active Substance: ONDANSETRON HYDROCHLORIDE
     Indication: NAUSEA
     Dosage: 8 MG, AS NEEDED (Q8H)
     Route: 048
     Dates: start: 20150107
  3. SUTENT [Suspect]
     Active Substance: SUNITINIB MALATE
     Indication: ENDOMETRIAL CANCER
     Dosage: 50 MG, UNK
     Route: 048
  4. METFORMIN HCL [Concomitant]
     Active Substance: METFORMIN HYDROCHLORIDE
     Dosage: 1 DF, 3X/DAY (WITH MORNING AND EVENING MEALS)
     Route: 048
     Dates: start: 20130519
  5. SUTENT [Suspect]
     Active Substance: SUNITINIB MALATE
     Dosage: 50 MG, CYCLIC (4 WEEKS ON/ 2 WEEKS OFF)
     Route: 048
     Dates: start: 20150630
  6. SUTENT [Suspect]
     Active Substance: SUNITINIB MALATE
     Dosage: 25 MG, CYCLIC (DAILY 4 WKS ON 2 WKS OFF/ QD)
     Route: 048
     Dates: start: 20150710, end: 20150814
  7. CRESTOR [Concomitant]
     Active Substance: ROSUVASTATIN CALCIUM
     Dosage: 1 DF, 1X/DAY
     Route: 048
     Dates: start: 20120411
  8. HYDROCHLOROTHIAZIDE. [Concomitant]
     Active Substance: HYDROCHLOROTHIAZIDE
     Dosage: 25 MG, 1X/DAY
     Route: 048
  9. FOSINOPRIL [Concomitant]
     Active Substance: FOSINOPRIL
     Dosage: 40 MG, 2X/DAY
     Route: 048
     Dates: start: 20120411

REACTIONS (9)
  - Nausea [Recovered/Resolved with Sequelae]
  - Diarrhoea [Unknown]
  - Product use issue [Unknown]
  - Decreased appetite [Recovered/Resolved with Sequelae]
  - Myalgia [Recovered/Resolved with Sequelae]
  - Fatigue [Recovered/Resolved with Sequelae]
  - Discomfort [Unknown]
  - Arthralgia [Unknown]
  - Headache [Recovered/Resolved with Sequelae]
